FAERS Safety Report 16658968 (Version 1)
Quarter: 2019Q3

REPORT INFORMATION
  Report Type: Spontaneous
  Country: CA (occurrence: CA)
  Receive Date: 20190801
  Receipt Date: 20190801
  Transmission Date: 20191004
  Serious: Yes (Life-Threatening, Hospitalization)
  Sender: FDA-Public Use
  Company Number: CA-HLSUS-2019-CA-000837

PATIENT
  Age: 68 Year
  Sex: Male
  Weight: 70 kg

DRUGS (11)
  1. TRIHEXYPHENIDYL [Concomitant]
     Active Substance: TRIHEXYPHENIDYL
  2. CLOZAPINE. [Suspect]
     Active Substance: CLOZAPINE
     Indication: SCHIZOPHRENIA
     Dosage: 300MG 1 EVERY 1 DAY
     Route: 048
  3. FRAGMIN [Concomitant]
     Active Substance: DALTEPARIN SODIUM
     Route: 042
  4. PHENYTOIN. [Concomitant]
     Active Substance: PHENYTOIN
  5. CLONIDINE. [Concomitant]
     Active Substance: CLONIDINE
  6. DOCUSATE [Concomitant]
     Active Substance: DOCUSATE
  7. INVEGA SUSTENNA PRE- FILLED SYRINGE [Concomitant]
  8. ATORVASTATIN [Concomitant]
     Active Substance: ATORVASTATIN
  9. CYANOCOBALAMINE INJ. [Concomitant]
     Route: 030
  10. ATROPINE. [Concomitant]
     Active Substance: ATROPINE
  11. METFORMIN [Concomitant]
     Active Substance: METFORMIN HYDROCHLORIDE

REACTIONS (2)
  - Postictal state [Recovered/Resolved]
  - Depressed level of consciousness [Recovered/Resolved]
